FAERS Safety Report 11920397 (Version 2)
Quarter: 2016Q1

REPORT INFORMATION
  Report Type: Spontaneous
  Country: BR (occurrence: BR)
  Receive Date: 20160115
  Receipt Date: 20160129
  Transmission Date: 20160526
  Serious: Yes (Other)
  Sender: FDA-Public Use
  Company Number: BR-ASTRAZENECA-2016SE01745

PATIENT
  Age: 141 Month
  Sex: Male
  Weight: 30 kg

DRUGS (2)
  1. BUSONID (BUDESONIDE) [Suspect]
     Active Substance: BUDESONIDE
     Indication: NASAL CONGESTION
     Dosage: 1 JET IN EACH NOSTRIL, DAILY
     Route: 045
     Dates: start: 201507
  2. VANNAIR [Suspect]
     Active Substance: BUDESONIDE\FORMOTEROL FUMARATE DIHYDRATE
     Indication: ASTHMA
     Dosage: 160/4.5 MCG, TWO TIMES A DAY
     Route: 055
     Dates: start: 201507

REACTIONS (3)
  - Product use issue [Unknown]
  - Asthmatic crisis [Recovered/Resolved]
  - Device malfunction [Unknown]

NARRATIVE: CASE EVENT DATE: 201512
